FAERS Safety Report 12342744 (Version 2)
Quarter: 2016Q2

REPORT INFORMATION
  Report Type: Spontaneous
  Country: FR (occurrence: FR)
  Receive Date: 20160506
  Receipt Date: 20160615
  Transmission Date: 20160815
  Serious: Yes (Hospitalization, Other)
  Sender: FDA-Public Use
  Company Number: FR-PFIZER INC-2016237661

PATIENT
  Age: 55 Year
  Sex: Female

DRUGS (11)
  1. FLAGYL [Suspect]
     Active Substance: METRONIDAZOLE\METRONIDAZOLE HYDROCHLORIDE
     Indication: SUBDURAL EMPYEMA
     Dosage: 500 MG, 3X/DAY
     Route: 048
     Dates: start: 20160317, end: 20160323
  2. ACUPAN [Suspect]
     Active Substance: NEFOPAM HYDROCHLORIDE
     Dosage: 4 DF, 1X/DAY
     Route: 042
     Dates: start: 20160317, end: 20160319
  3. LAMALINE [Concomitant]
     Active Substance: ACETAMINOPHEN\CAFFEINE\OPIUM
  4. CYMBALTA [Concomitant]
     Active Substance: DULOXETINE HYDROCHLORIDE
  5. FRAGMINE [Suspect]
     Active Substance: DALTEPARIN SODIUM
     Dosage: 5000 IU, 1X/DAY
     Route: 058
     Dates: start: 20160321, end: 20160326
  6. VANCOMYCIN SANDOZ [Suspect]
     Active Substance: VANCOMYCIN
     Indication: SUBDURAL EMPYEMA
     Dosage: 4 G, 1X/DAY
     Route: 042
     Dates: start: 20160317, end: 20160326
  7. ACUPAN [Suspect]
     Active Substance: NEFOPAM HYDROCHLORIDE
     Dosage: UNK
     Dates: start: 20160325
  8. LYRICA [Concomitant]
     Active Substance: PREGABALIN
  9. LEVOTHYROX [Concomitant]
     Active Substance: LEVOTHYROXINE
  10. AZACTAM [Suspect]
     Active Substance: AZTREONAM
     Indication: SUBDURAL EMPYEMA
     Dosage: UNK
     Route: 042
     Dates: start: 20160317, end: 20160323
  11. LEXOMIL ROCHE COMPRIME BAGUETTE [Concomitant]
     Active Substance: BROMAZEPAM

REACTIONS (5)
  - Acute generalised exanthematous pustulosis [Recovered/Resolved]
  - Inflammation [Recovered/Resolved]
  - Pyrexia [Recovered/Resolved]
  - Neutrophilia [Recovered/Resolved]
  - Hepatocellular injury [Recovered/Resolved]

NARRATIVE: CASE EVENT DATE: 20160323
